FAERS Safety Report 8031387-9 (Version None)
Quarter: 2011Q4

REPORT INFORMATION
  Report Type: 
  Country: None (occurrence: None)
  Receive Date: 20111201
  Receipt Date: 20101213
  Transmission Date: 20120403
  Serious: Yes (Other)
  Sender: FDA-Public Use
  Company Number: 259849USA

PATIENT
  Sex: Male

DRUGS (2)
  1. DEXTROPROPOXYPHENE HYDROCHLORIDE 65 MG CAPSULES (DEXTROPROPOXYPHENE) [Suspect]
     Dosage: (65 MG)
  2. FENTANYL [Suspect]
     Dosage: 50 MCG/HR

REACTIONS (6)
  - FEELING ABNORMAL [None]
  - LOSS OF CONSCIOUSNESS [None]
  - ILLOGICAL THINKING [None]
  - DYSPNOEA [None]
  - HEART RATE DECREASED [None]
  - RESPIRATORY ARREST [None]
